FAERS Safety Report 5342328-7 (Version None)
Quarter: 2007Q2

REPORT INFORMATION
  Report Type: 
  Country: None (occurrence: None)
  Receive Date: 20070601
  Receipt Date: 20070521
  Transmission Date: 20071010
  Serious: Yes (Disabling)
  Sender: FDA-Public Use
  Company Number: JP-ASTRAZENECA-2007AP03081

PATIENT
  Age: 64 Year
  Sex: Female

DRUGS (8)
  1. PULMICORT [Suspect]
     Indication: ASTHMA
     Route: 055
     Dates: end: 20060701
  2. PULMICORT [Suspect]
     Route: 055
     Dates: start: 20060701, end: 20061001
  3. PULMICORT [Suspect]
     Route: 055
     Dates: start: 20061001
  4. SEREVENT [Concomitant]
     Indication: ASTHMA
     Route: 055
  5. MEVALOTIN [Concomitant]
     Route: 048
  6. UNIPHYL LA [Concomitant]
     Indication: ASTHMA
     Route: 048
  7. MUCODYNE [Concomitant]
     Indication: ASTHMA
     Route: 048
  8. ONON [Concomitant]

REACTIONS (1)
  - VOCAL CORD PARALYSIS [None]
